FAERS Safety Report 10172331 (Version 2)
Quarter: 2014Q2

REPORT INFORMATION
  Report Type: Spontaneous
  Country: NL (occurrence: NL)
  Receive Date: 20140515
  Receipt Date: 20140623
  Transmission Date: 20141212
  Serious: Yes (Hospitalization, Other)
  Sender: FDA-Public Use
  Company Number: NL-BIOGENIDEC-2014BI045319

PATIENT
  Age: 41 Year
  Sex: Female

DRUGS (8)
  1. AVONEX [Suspect]
     Indication: RELAPSING-REMITTING MULTIPLE SCLEROSIS
     Route: 030
     Dates: start: 20081128, end: 20110804
  2. AVONEX [Suspect]
     Indication: RELAPSING-REMITTING MULTIPLE SCLEROSIS
     Route: 030
     Dates: start: 20110805
  3. NEURONTIN [Concomitant]
  4. AMITRIPTYLINE [Concomitant]
  5. TRAMADOL [Concomitant]
  6. PARACETAMOL [Concomitant]
  7. CODEINE [Concomitant]
  8. CLONAZEPAM [Concomitant]

REACTIONS (4)
  - Cholecystitis acute [Recovered/Resolved]
  - Constipation [Recovered/Resolved]
  - Cholelithiasis [Recovered/Resolved]
  - Wound complication [Unknown]
